FAERS Safety Report 19821174 (Version 2)
Quarter: 2024Q1

REPORT INFORMATION
  Report Type: Spontaneous
  Country: US (occurrence: US)
  Receive Date: 20210913
  Receipt Date: 20240201
  Transmission Date: 20240409
  Serious: No
  Sender: FDA-Public Use
  Company Number: US-NOVEN PHARMACEUTICALS, INC.-2020US008084

PATIENT
  Sex: Female
  Weight: 65.76 kg

DRUGS (6)
  1. COMBIPATCH [Suspect]
     Active Substance: ESTRADIOL\NORETHINDRONE ACETATE
     Indication: Menopausal symptoms
     Dosage: 0.05/0.14MG/DAY,  1 TRANSDERMAL PATCH CHANGED 2- 2.5 DAYS
     Route: 062
  2. COMBIPATCH [Suspect]
     Active Substance: ESTRADIOL\NORETHINDRONE ACETATE
     Indication: Night sweats
     Dosage: 0.05/0.25MG/DAY, 1 TRANSDERMAL PATCH CHANGED EVERY 3.5 DAYS
     Route: 062
  3. COMBIPATCH [Suspect]
     Active Substance: ESTRADIOL\NORETHINDRONE ACETATE
     Dosage: 0.05/0.25MG/DAY, 1 TRANSDERMAL PATCH CHANGED EVERY 3.5 DAYS
     Route: 062
  4. ATENOLOL [Concomitant]
     Active Substance: ATENOLOL
     Indication: Migraine
     Dosage: UNK
  5. SUMATRIPTAN [Concomitant]
     Active Substance: SUMATRIPTAN
     Indication: Migraine
     Dosage: UNK
  6. LEVOTHYROXINE [Concomitant]
     Active Substance: LEVOTHYROXINE\LEVOTHYROXINE SODIUM
     Indication: Hypothyroidism
     Dosage: UNK

REACTIONS (4)
  - Panic attack [Unknown]
  - Drug ineffective [Recovered/Resolved]
  - Therapeutic response shortened [Not Recovered/Not Resolved]
  - Off label use [Not Recovered/Not Resolved]
